FAERS Safety Report 13620981 (Version 2)
Quarter: 2017Q3

REPORT INFORMATION
  Report Type: Report from Study
  Country: US (occurrence: US)
  Receive Date: 20170607
  Receipt Date: 20170720
  Transmission Date: 20171127
  Serious: No
  Sender: FDA-Public Use
  Company Number: PHEH2017US016995

PATIENT
  Age: 64 Year
  Sex: Female

DRUGS (3)
  1. COSENTYX [Suspect]
     Active Substance: SECUKINUMAB
     Dosage: 300 MG, QW
     Route: 058
  2. COSENTYX [Suspect]
     Active Substance: SECUKINUMAB
     Dosage: 300 MG, QW
     Route: 058
     Dates: start: 20170601
  3. COSENTYX [Suspect]
     Active Substance: SECUKINUMAB
     Indication: PSORIATIC ARTHROPATHY
     Dosage: 300 MG, QW
     Route: 058
     Dates: start: 20170518

REACTIONS (3)
  - Sneezing [Not Recovered/Not Resolved]
  - Device issue [Not Recovered/Not Resolved]
  - Nasal congestion [Not Recovered/Not Resolved]

NARRATIVE: CASE EVENT DATE: 20170524
